FAERS Safety Report 8053900-8 (Version None)
Quarter: 2012Q1

REPORT INFORMATION
  Report Type: 
  Country: None (occurrence: None)
  Receive Date: 20120118
  Receipt Date: 20120112
  Transmission Date: 20120608
  Serious: Yes (Life-Threatening, Hospitalization, Other)
  Sender: FDA-Public Use
  Company Number: FR-ELI_LILLY_AND_COMPANY-FR201201003455

PATIENT
  Sex: Female

DRUGS (4)
  1. AVASTIN [Concomitant]
     Indication: BREAST CANCER
     Dosage: UNK
     Route: 042
     Dates: start: 20100401, end: 20110725
  2. FASLODEX [Concomitant]
     Indication: BREAST CANCER
     Dosage: UNK
     Route: 042
     Dates: start: 20100401, end: 20110801
  3. GEMZAR [Suspect]
     Indication: BREAST CANCER
     Dosage: UNK
     Route: 042
     Dates: start: 20100401, end: 20110815
  4. IRBESARTAN [Concomitant]
     Indication: HYPERTENSION
     Dosage: UNK
     Route: 048
     Dates: start: 20110201, end: 20110801

REACTIONS (5)
  - THROMBOCYTOPENIA [None]
  - RENAL FAILURE ACUTE [None]
  - ANAEMIA [None]
  - THROMBOTIC MICROANGIOPATHY [None]
  - HYPERTENSION [None]
